FAERS Safety Report 9200927 (Version 1)
Quarter: 2013Q2

REPORT INFORMATION
  Report Type: Spontaneous
  Country: SE (occurrence: SE)
  Receive Date: 20130401
  Receipt Date: 20130401
  Transmission Date: 20140414
  Serious: Yes (Hospitalization)
  Sender: FDA-Public Use
  Company Number: SE-JNJFOC-20130315310

PATIENT
  Age: 26 Year
  Sex: Female

DRUGS (1)
  1. CILEST [Suspect]
     Indication: CONTRACEPTION
     Dosage: SINCE 5 YEARS
     Route: 065

REACTIONS (3)
  - Pulmonary embolism [Unknown]
  - Chest pain [Unknown]
  - Dyspnoea exertional [Unknown]
